FAERS Safety Report 10069914 (Version 2)
Quarter: 2014Q2

REPORT INFORMATION
  Report Type: Report from Study
  Country: CA (occurrence: CA)
  Receive Date: 20140410
  Receipt Date: 20140416
  Transmission Date: 20141212
  Serious: Yes (Hospitalization)
  Sender: FDA-Public Use
  Company Number: CA-JNJFOC-20140403691

PATIENT
  Age: 81 Year
  Sex: Female
  Weight: 53 kg

DRUGS (2)
  1. REMICADE [Suspect]
     Indication: COLITIS ULCERATIVE
     Route: 042
     Dates: start: 20130319
  2. NORVASC [Concomitant]
     Route: 065

REACTIONS (1)
  - Loss of consciousness [Recovered/Resolved]
